FAERS Safety Report 7138189-6 (Version None)
Quarter: 2010Q4

REPORT INFORMATION
  Report Type: 
  Country: None (occurrence: None)
  Receive Date: 20101206
  Receipt Date: 20100122
  Transmission Date: 20110411
  Serious: No
  Sender: FDA-Public Use
  Company Number: US-ABBOTT-10P-163-0622268-00

PATIENT
  Sex: Female
  Weight: 63.56 kg

DRUGS (1)
  1. OMNICEF [Suspect]
     Indication: INFECTION
     Dosage: UNKNOWN

REACTIONS (2)
  - HEART RATE INCREASED [None]
  - HYPERTENSION [None]
